FAERS Safety Report 14165526 (Version 4)
Quarter: 2017Q4

REPORT INFORMATION
  Report Type: Spontaneous
  Country: US (occurrence: US)
  Receive Date: 20171107
  Receipt Date: 20171130
  Transmission Date: 20180321
  Serious: Yes (Other)
  Sender: FDA-Public Use
  Company Number: US-VIIV HEALTHCARE LIMITED-US2017GSK167663

PATIENT
  Age: 49 Year
  Sex: Male
  Weight: 87.75 kg

DRUGS (11)
  1. TRIAMTERENE/HCTZ 37.5MG/25MG [Concomitant]
     Active Substance: HYDROCHLOROTHIAZIDE\TRIAMTERENE
  2. TRIUMEQ [Suspect]
     Active Substance: ABACAVIR SULFATE\DOLUTEGRAVIR SODIUM\LAMIVUDINE
     Indication: HIV INFECTION
     Dosage: 1 TABLET, 1D
     Route: 048
     Dates: start: 20161005, end: 20170313
  3. ATORVASTATIN [Concomitant]
     Active Substance: ATORVASTATIN
     Dosage: 40 MG, UNK
  4. FENOFIBRATE. [Concomitant]
     Active Substance: FENOFIBRATE
     Dosage: 160 MG, UNK
  5. METFORMIN [Suspect]
     Active Substance: METFORMIN HYDROCHLORIDE
     Indication: DIABETES MELLITUS
     Dosage: 850 MG, QD
     Dates: start: 2016
  6. ATRIPLA [Suspect]
     Active Substance: EFAVIRENZ\EMTRICITABINE\TENOFOVIR DISOPROXIL FUMARATE
     Indication: HIV INFECTION
     Dosage: UNK
     Dates: end: 2016
  7. FLONASE [Concomitant]
     Active Substance: FLUTICASONE PROPIONATE
  8. METFORMIN [Suspect]
     Active Substance: METFORMIN HYDROCHLORIDE
     Indication: DIABETES MELLITUS
     Dosage: 1000 MG, UNK
     Dates: end: 20161004
  9. METFORMIN [Suspect]
     Active Substance: METFORMIN HYDROCHLORIDE
     Dosage: 850 UNK, UNK
     Dates: start: 20161005
  10. FLONASE [Concomitant]
     Active Substance: FLUTICASONE PROPIONATE
  11. ROBAXIN [Concomitant]
     Active Substance: METHOCARBAMOL

REACTIONS (5)
  - Diabetes mellitus inadequate control [Recovering/Resolving]
  - Proteinuria [Unknown]
  - Adverse event [Unknown]
  - Blood glucose abnormal [Unknown]
  - Glycosylated haemoglobin increased [Recovering/Resolving]

NARRATIVE: CASE EVENT DATE: 201702
